FAERS Safety Report 21573782 (Version 1)
Quarter: 2022Q4

REPORT INFORMATION
  Report Type: Report from Study
  Country: US (occurrence: US)
  Receive Date: 20221109
  Receipt Date: 20221109
  Transmission Date: 20230113
  Serious: No
  Sender: FDA-Public Use
  Company Number: US-ABBVIE-4159371

PATIENT
  Sex: Male

DRUGS (5)
  1. HUMIRA [Suspect]
     Active Substance: ADALIMUMAB
     Indication: Musculoskeletal stiffness
     Dosage: FORM STRENGTH: 40MG
     Route: 058
  2. HUMIRA [Suspect]
     Active Substance: ADALIMUMAB
     Indication: Crohn^s disease
     Dosage: FORM STRENGTH: 40MG
     Route: 058
  3. PFIZER-BIONTECH COVID-19 VACCINE [Concomitant]
     Active Substance: TOZINAMERAN
     Indication: COVID-19 immunisation
     Dosage: FIRST DOSE, ONCE
     Route: 030
     Dates: start: 20210318, end: 20210318
  4. PFIZER-BIONTECH COVID-19 VACCINE [Concomitant]
     Active Substance: TOZINAMERAN
     Indication: COVID-19 immunisation
     Dosage: SECOND DOSE, ONCE
     Route: 030
     Dates: start: 20210415, end: 20210415
  5. PFIZER-BIONTECH COVID-19 VACCINE [Concomitant]
     Active Substance: TOZINAMERAN
     Indication: COVID-19 immunisation
     Dosage: THIRD DOSE OR BOOSTER DOSE, ONCE
     Route: 030
     Dates: start: 20211103, end: 20211103

REACTIONS (9)
  - Fatigue [Unknown]
  - Product administered at inappropriate site [Recovering/Resolving]
  - Off label use [Unknown]
  - Pain [Unknown]
  - Malaise [Unknown]
  - Wrong technique in product usage process [Not Recovered/Not Resolved]
  - Somnolence [Unknown]
  - Incorrect route of product administration [Recovered/Resolved]
  - Musculoskeletal stiffness [Unknown]
